FAERS Safety Report 25265812 (Version 1)
Quarter: 2025Q2

REPORT INFORMATION
  Report Type: Spontaneous
  Country: CN (occurrence: CN)
  Receive Date: 20250503
  Receipt Date: 20250503
  Transmission Date: 20250716
  Serious: Yes (Life-Threatening, Hospitalization)
  Sender: ACCORD
  Company Number: CN-MLMSERVICE-20250414-PI480538-00306-1

PATIENT
  Age: 7 Month
  Sex: Male
  Weight: 7.4 kg

DRUGS (3)
  1. MYCOPHENOLIC ACID [Suspect]
     Active Substance: MYCOPHENOLIC ACID
     Indication: Passenger lymphocyte syndrome
     Dates: start: 2023
  2. TACROLIMUS [Suspect]
     Active Substance: TACROLIMUS
     Indication: Immunosuppressant drug therapy
     Dates: start: 202304, end: 2023
  3. PREDNISONE [Concomitant]
     Active Substance: PREDNISONE
     Indication: Immunosuppressant drug therapy
     Dates: start: 202304

REACTIONS (1)
  - Venoocclusive liver disease [Recovering/Resolving]

NARRATIVE: CASE EVENT DATE: 20230101
